FAERS Safety Report 4958598-0 (Version None)
Quarter: 2006Q1

REPORT INFORMATION
  Report Type: 
  Country: None (occurrence: None)
  Receive Date: 20060127
  Receipt Date: 20050111
  Transmission Date: 20060701
  Serious: Yes (Death)
  Sender: FDA-Public Use
  Company Number: 05-01-0074

PATIENT
  Age: 42 Year
  Sex: Male

DRUGS (5)
  1. CLOZAPINE [Suspect]
     Indication: SCHIZOAFFECTIVE DISORDER
     Dosage: 50-400MG QD, ORAL
     Route: 048
     Dates: start: 20010201, end: 20041101
  2. LUVOX [Suspect]
     Dosage: 150MG BID
  3. IMIPRAMINE [Suspect]
  4. AMITRIPTYLINE (AMITRIPTYLINE) [Suspect]
  5. BUSPAR [Suspect]
     Dosage: 5MG TID

REACTIONS (1)
  - DRUG TOXICITY [None]
